FAERS Safety Report 4929469-0 (Version None)
Quarter: 2006Q1

REPORT INFORMATION
  Report Type: 
  Country: None (occurrence: None)
  Receive Date: 20060127
  Receipt Date: 20051026
  Transmission Date: 20060701
  Serious: Yes (Other)
  Sender: FDA-Public Use
  Company Number: 2005147992

PATIENT
  Sex: Female

DRUGS (8)
  1. LYRICA [Suspect]
     Indication: DIABETIC NEUROPATHY
     Dosage: 150 MG (75 MG, TWICE DAILY)
  2. KLONOPIN (CLANAZEPAM) [Concomitant]
  3. PREVACID [Concomitant]
  4. VOLTAREN [Concomitant]
  5. PREDNISONE TAB [Concomitant]
  6. DAPSONE [Concomitant]
  7. ANTIDEPRESSANTS (ANTIDEPRESSANTS) [Concomitant]
  8. OXYCONTIN [Concomitant]

REACTIONS (2)
  - JOINT SWELLING [None]
  - SOMNOLENCE [None]
